FAERS Safety Report 9731423 (Version 1)
Quarter: 2013Q4

REPORT INFORMATION
  Report Type: Spontaneous
  Country: US (occurrence: None)
  Receive Date: 20131204
  Receipt Date: 20131204
  Transmission Date: 20140711
  Serious: Yes (Disabling)
  Sender: FDA-Public Use
  Company Number: None

PATIENT
  Age: 76 Year
  Sex: Female
  Weight: 53.52 kg

DRUGS (2)
  1. METOPROLOL TARTRATE [Suspect]
     Indication: INFECTION
     Route: 048
     Dates: start: 20131002, end: 20131019
  2. METOPROLOL TARTRATE [Suspect]
     Indication: BURNING SENSATION
     Route: 048
     Dates: start: 20131002, end: 20131019

REACTIONS (1)
  - Burning sensation [None]
